FAERS Safety Report 9153712 (Version 1)
Quarter: 2013Q1

REPORT INFORMATION
  Report Type: Spontaneous
  Country: JP (occurrence: JP)
  Receive Date: 20130311
  Receipt Date: 20130311
  Transmission Date: 20140127
  Serious: Yes (Other)
  Sender: FDA-Public Use
  Company Number: JP-JNJFOC-20130301726

PATIENT
  Age: 41 Year
  Sex: Female

DRUGS (3)
  1. DUROTEP MT [Suspect]
     Indication: BACK PAIN
     Route: 062
  2. DUROTEP MT [Suspect]
     Indication: BACK PAIN
     Route: 062
  3. DUROTEP MT [Suspect]
     Indication: BACK PAIN
     Route: 062

REACTIONS (5)
  - Suicidal ideation [Recovering/Resolving]
  - Depressive symptom [Recovering/Resolving]
  - Nausea [Recovering/Resolving]
  - Decreased appetite [Unknown]
  - Inadequate analgesia [Unknown]
